FAERS Safety Report 19108584 (Version 2)
Quarter: 2021Q2

REPORT INFORMATION
  Report Type: Spontaneous
  Country: US (occurrence: US)
  Receive Date: 20210408
  Receipt Date: 20210517
  Transmission Date: 20210717
  Serious: No
  Sender: FDA-Public Use
  Company Number: US-PFIZER INC-2020250724

PATIENT
  Age: 57 Year
  Sex: Female

DRUGS (1)
  1. XELJANZ [Suspect]
     Active Substance: TOFACITINIB CITRATE
     Dosage: 5 MG

REACTIONS (5)
  - Malaise [Unknown]
  - Memory impairment [Unknown]
  - Pain [Unknown]
  - Movement disorder [Unknown]
  - COVID-19 [Unknown]

NARRATIVE: CASE EVENT DATE: 2021
